FAERS Safety Report 7555570-1 (Version None)
Quarter: 2011Q2

REPORT INFORMATION
  Report Type: 
  Country: None (occurrence: None)
  Receive Date: 20110617
  Receipt Date: 20060705
  Transmission Date: 20111010
  Serious: Yes (Death, Hospitalization, Other)
  Sender: FDA-Public Use
  Company Number: PHHO2006BR10944

PATIENT
  Age: 93 Year
  Sex: Female
  Weight: 60 kg

DRUGS (3)
  1. DIOVAN [Suspect]
     Indication: HYPERTENSION
     Dosage: 160 MG, DAILY
     Route: 048
     Dates: start: 20060201
  2. AESCULUS HIPPOCASTANUM [Concomitant]
  3. CAPTOPRIL [Suspect]

REACTIONS (8)
  - KIDNEY INFECTION [None]
  - DYSPNOEA [None]
  - CARDIAC FAILURE CONGESTIVE [None]
  - PNEUMONIA [None]
  - BLOOD PRESSURE DECREASED [None]
  - LUNG INFILTRATION [None]
  - COUGH [None]
  - CATARACT [None]
